FAERS Safety Report 8270679-5 (Version None)
Quarter: 2012Q2

REPORT INFORMATION
  Report Type: 
  Country: None (occurrence: None)
  Receive Date: 20120410
  Receipt Date: 20120327
  Transmission Date: 20120825
  Serious: Yes (Other)
  Sender: FDA-Public Use
  Company Number: US-ROCHE-1027694

PATIENT
  Sex: Female
  Weight: 53.572 kg

DRUGS (3)
  1. YASMIN [Concomitant]
  2. ACCUTANE [Suspect]
     Indication: ACNE
     Dates: start: 19980327, end: 19990301
  3. ACCUTANE [Suspect]
     Dates: start: 19990701, end: 20000401

REACTIONS (5)
  - CROHN'S DISEASE [None]
  - OSTEOPENIA [None]
  - INFLAMMATORY BOWEL DISEASE [None]
  - COLITIS ULCERATIVE [None]
  - IRRITABLE BOWEL SYNDROME [None]
